FAERS Safety Report 9668739 (Version 3)
Quarter: 2014Q1

REPORT INFORMATION
  Report Type: Spontaneous
  Country: JP (occurrence: JP)
  Receive Date: 20131105
  Receipt Date: 20140328
  Transmission Date: 20141002
  Serious: Yes (Hospitalization)
  Sender: FDA-Public Use
  Company Number: JP-ROCHE-1296225

PATIENT
  Age: 64 Year
  Sex: Male
  Weight: 60 kg

DRUGS (7)
  1. AVASTIN [Suspect]
     Indication: RECTAL CANCER METASTATIC
     Dosage: DOSAGE IS UNCERTAIN.?TREATMENT LINE: 1
     Route: 041
     Dates: start: 20120328, end: 20120328
  2. ELPLAT [Concomitant]
     Indication: RECTAL CANCER METASTATIC
     Route: 041
     Dates: start: 20120328, end: 20120328
  3. 5-FU [Concomitant]
     Indication: RECTAL CANCER METASTATIC
     Route: 041
     Dates: start: 20120328, end: 20120330
  4. 5-FU [Concomitant]
     Indication: RECTAL CANCER METASTATIC
     Route: 040
     Dates: start: 20120328, end: 20120328
  5. CALCIUM LEVOFOLINATE [Concomitant]
     Indication: RECTAL CANCER METASTATIC
     Route: 041
     Dates: start: 20120328, end: 20120328
  6. ALOXI [Concomitant]
     Indication: PROPHYLAXIS
     Route: 065
     Dates: start: 20120328, end: 20120328
  7. DEXART [Concomitant]
     Indication: PROPHYLAXIS
     Route: 065
     Dates: start: 20120328, end: 20120328

REACTIONS (1)
  - Lung disorder [Recovered/Resolved]
